FAERS Safety Report 9324518 (Version 1)
Quarter: 2013Q2

REPORT INFORMATION
  Report Type: Spontaneous
  Country: US (occurrence: None)
  Receive Date: 20130529
  Receipt Date: 20130529
  Transmission Date: 20140414
  Serious: Yes (Life-Threatening, Other)
  Sender: FDA-Public Use
  Company Number: 001540040A

PATIENT
  Age: 60 Year
  Sex: Female

DRUGS (6)
  1. PROACTIV REPAIRING TREATMENT [Suspect]
     Indication: ACNE
     Dosage: TWICE DAILY DERMAL
     Dates: start: 20130507, end: 20130510
  2. PROACTIVE DARK SPOT CORRECTOR [Suspect]
     Indication: ACNE
     Dosage: TWICE DAILY DERMAL
     Dates: start: 20130507, end: 20130510
  3. LEVAQUIN [Concomitant]
  4. PREDNISONE [Concomitant]
  5. INHALATION NEBULIZERS [Concomitant]
  6. EPIPEN [Concomitant]

REACTIONS (10)
  - Rash [None]
  - Pruritus [None]
  - Burning sensation [None]
  - Lip swelling [None]
  - Local swelling [None]
  - Pharyngeal oedema [None]
  - Throat tightness [None]
  - Dyspnoea [None]
  - Skin burning sensation [None]
  - Blister [None]
